FAERS Safety Report 9376415 (Version 2)
Quarter: 2013Q3

REPORT INFORMATION
  Report Type: Spontaneous
  Country: US (occurrence: US)
  Receive Date: 20130701
  Receipt Date: 20130820
  Transmission Date: 20140515
  Serious: No
  Sender: FDA-Public Use
  Company Number: US-B.I. PHARMACEUTICALS,INC./RIDGEFIELD-2013-BI-18304BP

PATIENT
  Age: 71 Year
  Sex: 0
  Weight: 93 kg

DRUGS (2)
  1. SPIRIVA [Suspect]
     Indication: BRONCHITIS CHRONIC
     Dosage: 18 MCG
     Route: 055
     Dates: start: 20130603, end: 20130616
  2. AMOXICILLIN [Concomitant]
     Indication: SINUSITIS
     Route: 048
     Dates: end: 201306

REACTIONS (3)
  - Ageusia [Not Recovered/Not Resolved]
  - Oral candidiasis [Recovered/Resolved]
  - Drug ineffective [Not Recovered/Not Resolved]
